FAERS Safety Report 19068390 (Version 1)
Quarter: 2021Q1

REPORT INFORMATION
  Report Type: Spontaneous
  Country: US (occurrence: US)
  Receive Date: 20210327
  Receipt Date: 20210327
  Transmission Date: 20210420
  Serious: Yes (Other)
  Sender: FDA-Public Use
  Company Number: None

PATIENT
  Age: 59 Year
  Sex: Female
  Weight: 87.75 kg

DRUGS (5)
  1. LEVOTHYROXIN [Concomitant]
     Active Substance: LEVOTHYROXINE
  2. VITAMIN D [Concomitant]
     Active Substance: VITAMIN D NOS
  3. SCENT THEORY ? KEEP CLEAN MOISTURIZING HAND SANITIZER WITH ALOE 65 PERCENT [Suspect]
     Active Substance: ALCOHOL
     Indication: COVID-19 PROPHYLAXIS
     Route: 061
     Dates: start: 20210324, end: 20210326
  4. PEPCID ACID [Concomitant]
  5. ATOROVOSTATIN [Concomitant]

REACTIONS (3)
  - Recalled product administered [None]
  - Thyroid pain [None]
  - Swelling [None]

NARRATIVE: CASE EVENT DATE: 20210324
